FAERS Safety Report 7276488-8 (Version None)
Quarter: 2011Q1

REPORT INFORMATION
  Report Type: 
  Country: None (occurrence: None)
  Receive Date: 20110131
  Receipt Date: 20110117
  Transmission Date: 20110831
  Serious: Yes (Hospitalization, Other)
  Sender: FDA-Public Use
  Company Number: 1000018551

PATIENT
  Age: 58 Year
  Sex: Male
  Weight: 65 kg

DRUGS (7)
  1. ASASANTIN SR (DIPYRIDAMOLE) [Concomitant]
  2. ASPIRIN [Concomitant]
  3. ESOMEPRAZOLE MAGNESIUM TRIHYDRATE (ESOMEPRAZOLE) [Concomitant]
  4. ATORVASTATIN [Concomitant]
  5. WARFARIN SODIUM [Concomitant]
  6. CITALOPRAM HYDROBROMIDE [Suspect]
     Dosage: 20 MG (20 MG, 1 IN 1 D),
     Dates: start: 20101024, end: 20101112
  7. AUGMENTIN DUO FORTE (AMOXICILLIN, CLAVULANIC ACID) [Concomitant]

REACTIONS (4)
  - PRURITUS [None]
  - RASH PAPULAR [None]
  - VASCULITIS [None]
  - TOXIC EPIDERMAL NECROLYSIS [None]
